FAERS Safety Report 9496458 (Version 3)
Quarter: 2013Q3

REPORT INFORMATION
  Report Type: Report from Study
  Country: US (occurrence: US)
  Receive Date: 20130904
  Receipt Date: 20130919
  Transmission Date: 20140515
  Serious: Yes (Hospitalization)
  Sender: FDA-Public Use
  Company Number: PHEH2013US014336

PATIENT
  Sex: Male
  Weight: 78.5 kg

DRUGS (11)
  1. AFINITOR [Suspect]
     Indication: CARCINOID TUMOUR
     Dosage: 10 MG
  2. AFINITOR [Suspect]
     Dosage: 5 MG,QD
  3. SANDOSTATIN [Concomitant]
     Dosage: 60 MG, QMO
     Dates: start: 201109
  4. ASPIRIN [Concomitant]
     Dosage: 81 MG/DAY
     Route: 048
  5. ATORVASTATIN [Concomitant]
     Dosage: 40 MG/DAY
     Route: 048
  6. CO Q10 [Concomitant]
     Dosage: DAILY
     Route: 048
  7. CALCIUM [Concomitant]
     Dosage: 1200 MG
     Route: 048
  8. FISH OIL [Concomitant]
     Route: 048
  9. GLUCOSAMINE [Concomitant]
     Route: 048
  10. METOPROLOL SUCCINATE [Concomitant]
     Dosage: 100 MG
     Route: 048
  11. VIT D3 [Concomitant]
     Dosage: 1000 U
     Route: 048

REACTIONS (10)
  - Gastric disorder [Recovered/Resolved]
  - Tremor [Recovered/Resolved]
  - Joint lock [Recovered/Resolved]
  - Obstruction gastric [Recovered/Resolved]
  - Diarrhoea [Recovered/Resolved]
  - Abdominal pain lower [Recovered/Resolved]
  - Nausea [Recovered/Resolved]
  - Asthenia [Recovered/Resolved]
  - Dehydration [Recovered/Resolved]
  - Dizziness [Recovered/Resolved]
